FAERS Safety Report 6291563-2 (Version None)
Quarter: 2009Q3

REPORT INFORMATION
  Report Type: 
  Country: None (occurrence: None)
  Receive Date: 20090730
  Receipt Date: 20090721
  Transmission Date: 20100115
  Serious: Yes (Other)
  Sender: FDA-Public Use
  Company Number: PHHY2009DE30281

PATIENT
  Sex: Male

DRUGS (1)
  1. TRILEPTAL [Suspect]
     Dosage: 1050 MG/DAY
     Route: 048
     Dates: start: 20080401

REACTIONS (3)
  - APHASIA [None]
  - MENTAL DISORDER [None]
  - SPEECH DISORDER [None]
